FAERS Safety Report 15382816 (Version 1)
Quarter: 2018Q3

REPORT INFORMATION
  Report Type: Spontaneous
  Country: US (occurrence: US)
  Receive Date: 20180913
  Receipt Date: 20180913
  Transmission Date: 20181010
  Serious: No
  Sender: FDA-Public Use
  Company Number: US-ASTELLAS-2018US013435

PATIENT
  Age: 79 Year
  Sex: Male

DRUGS (1)
  1. XTANDI [Suspect]
     Active Substance: ENZALUTAMIDE
     Indication: PROSTATE CANCER
     Route: 065
     Dates: end: 201803

REACTIONS (6)
  - Visual impairment [Unknown]
  - Dysstasia [Unknown]
  - Abdominal pain upper [Unknown]
  - Headache [Unknown]
  - Intentional underdose [Unknown]
  - Muscular weakness [Unknown]

NARRATIVE: CASE EVENT DATE: 201803
